FAERS Safety Report 6324970-X (Version None)
Quarter: 2009Q3

REPORT INFORMATION
  Report Type: 
  Country: None (occurrence: None)
  Receive Date: 20090824
  Receipt Date: 20090617
  Transmission Date: 20100115
  Serious: No
  Sender: FDA-Public Use
  Company Number: US-ABBOTT-09P-163-0580887-00

PATIENT
  Age: 81 Year
  Sex: Male
  Weight: 99.88 kg

DRUGS (6)
  1. NIASPAN [Suspect]
     Indication: BLOOD CHOLESTEROL INCREASED
     Dosage: 500MG DAILY
     Dates: start: 20090610
  2. ATENOLOL [Concomitant]
     Indication: CARDIAC DISORDER
     Dosage: 50MG DAILY
  3. LISINOPRIL HYDROCHLORTHIAZID [Concomitant]
     Indication: CARDIAC DISORDER
     Dosage: 12.5MG/20MG TWICE DAILY
  4. ASPIRIN [Concomitant]
     Indication: CARDIAC DISORDER
     Dosage: 81MG DAILY
  5. PRILOSEC [Concomitant]
     Indication: CROHN'S DISEASE
     Dosage: DAILY
  6. POLYETHYLENE GLYCOL [Concomitant]
     Indication: CROHN'S DISEASE
     Dosage: 17 GRAMS AT BEDTIME

REACTIONS (6)
  - ANGINA PECTORIS [None]
  - ASTHENIA [None]
  - BLOOD GLUCOSE INCREASED [None]
  - BLOOD PRESSURE FLUCTUATION [None]
  - DIARRHOEA [None]
  - MYALGIA [None]
